FAERS Safety Report 4914025-0 (Version None)
Quarter: 2006Q1

REPORT INFORMATION
  Report Type: 
  Country: None (occurrence: None)
  Receive Date: 20060216
  Receipt Date: 20060207
  Transmission Date: 20060701
  Serious: Yes (Hospitalization)
  Sender: FDA-Public Use
  Company Number: IT-SANOFI-SYNTHELABO-A06200600035

PATIENT
  Age: 54 Year
  Sex: Male

DRUGS (1)
  1. OXALIPLATINO [Suspect]
     Indication: RECTAL CANCER
     Dosage: UNK
     Route: 041
     Dates: end: 20050130

REACTIONS (2)
  - GENERALISED OEDEMA [None]
  - RENAL FAILURE ACUTE [None]
